FAERS Safety Report 25335548 (Version 1)
Quarter: 2025Q2

REPORT INFORMATION
  Report Type: Spontaneous
  Country: SK (occurrence: SK)
  Receive Date: 20250520
  Receipt Date: 20250520
  Transmission Date: 20250716
  Serious: Yes (Other)
  Sender: IPSEN BIOPHARMACEUTICALS, INC.
  Company Number: None

PATIENT
  Age: 70 Year
  Sex: Male

DRUGS (6)
  1. ONIVYDE [Suspect]
     Active Substance: IRINOTECAN HYDROCHLORIDE
     Indication: Ductal adenocarcinoma of pancreas
     Dosage: UNK UNK, EVERY 2 WEEKS
     Route: 065
     Dates: start: 202201
  2. ONIVYDE [Suspect]
     Active Substance: IRINOTECAN HYDROCHLORIDE
     Dosage: UNK UNK, EVERY 3 WEEKS
     Route: 065
  3. FLUOROURACIL [Suspect]
     Active Substance: FLUOROURACIL
     Indication: Ductal adenocarcinoma of pancreas
     Dosage: UNK UNK, EVERY 2 WEEKS
     Route: 042
     Dates: start: 202201
  4. CAPECITABINE [Suspect]
     Active Substance: CAPECITABINE
     Indication: Ductal adenocarcinoma of pancreas
     Dosage: UNK UNK, EVERY 2 WEEKS
     Route: 048
     Dates: start: 2022
  5. CAPECITABINE [Suspect]
     Active Substance: CAPECITABINE
     Dosage: UNK UNK, EVERY 3 WEEKS
     Route: 048
  6. LEUCOVORIN [Suspect]
     Active Substance: LEUCOVORIN\LEUCOVORIN CALCIUM
     Indication: Ductal adenocarcinoma of pancreas
     Dosage: UNK UNK, EVERY 2 WEEKS
     Route: 065
     Dates: start: 202201

REACTIONS (2)
  - Gastrointestinal toxicity [Recovered/Resolved]
  - Product use issue [Recovered/Resolved]

NARRATIVE: CASE EVENT DATE: 20220101
